FAERS Safety Report 9134377 (Version 2)
Quarter: 2014Q1

REPORT INFORMATION
  Report Type: Spontaneous
  Country: US (occurrence: US)
  Receive Date: 20130304
  Receipt Date: 20140106
  Transmission Date: 20141002
  Serious: Yes (Other)
  Sender: FDA-Public Use
  Company Number: US-JNJFOC-20130212182

PATIENT
  Sex: Female
  Weight: 120.2 kg

DRUGS (4)
  1. DURAGESIC [Suspect]
     Indication: SPINAL PAIN
     Route: 062
  2. DURAGESIC [Suspect]
     Indication: SPINAL PAIN
     Route: 062
  3. SOMA [Concomitant]
     Indication: PAIN
     Route: 048
  4. HYDROCODONE [Concomitant]
     Indication: PAIN
     Dosage: 10/325/TABLET
     Route: 048

REACTIONS (8)
  - Weight decreased [Not Recovered/Not Resolved]
  - Blood pressure increased [Not Recovered/Not Resolved]
  - Presyncope [Recovered/Resolved]
  - Pain [Not Recovered/Not Resolved]
  - Vomiting projectile [Not Recovered/Not Resolved]
  - Cough [Not Recovered/Not Resolved]
  - Ill-defined disorder [Not Recovered/Not Resolved]
  - Drug dose omission [Unknown]
